FAERS Safety Report 7833496-3 (Version None)
Quarter: 2011Q4

REPORT INFORMATION
  Report Type: 
  Country: None (occurrence: None)
  Receive Date: 20111024
  Receipt Date: 20111014
  Transmission Date: 20120403
  Serious: Yes (Hospitalization)
  Sender: FDA-Public Use
  Company Number: US-MYLANLABS-2011S1021413

PATIENT
  Age: 20 Month
  Sex: Male

DRUGS (1)
  1. SUMATRIPTAN SUCCINATE [Suspect]
     Indication: ACCIDENTAL EXPOSURE
     Route: 048
     Dates: start: 20111012, end: 20111012

REACTIONS (1)
  - ACCIDENTAL DRUG INTAKE BY CHILD [None]
